FAERS Safety Report 15271264 (Version 1)
Quarter: 2018Q3

REPORT INFORMATION
  Report Type: Spontaneous
  Country: US (occurrence: US)
  Receive Date: 20180726
  Receipt Date: 20180726
  Transmission Date: 20181010
  Serious: Yes (Hospitalization)
  Sender: FDA-Public Use
  Company Number: None

PATIENT
  Age: 63 Year
  Sex: Female

DRUGS (8)
  1. HUMALOG [Concomitant]
     Active Substance: INSULIN LISPRO
  2. VALACYCLOVIR [Concomitant]
     Active Substance: VALACYCLOVIR HYDROCHLORIDE
  3. FOLIC ACID. [Concomitant]
     Active Substance: FOLIC ACID
  4. GABAPENTIN. [Concomitant]
     Active Substance: GABAPENTIN
  5. METHOCARBAM [Concomitant]
     Active Substance: METHOCARBAMOL
  6. DOK [Concomitant]
     Active Substance: DOCUSATE SODIUM
  7. MELOXICAM. [Concomitant]
     Active Substance: MELOXICAM
  8. ACTEMRA [Suspect]
     Active Substance: TOCILIZUMAB
     Indication: RHEUMATOID ARTHRITIS
     Route: 058
     Dates: start: 20180629

REACTIONS (2)
  - Drug dose omission [None]
  - Spinal operation [None]

NARRATIVE: CASE EVENT DATE: 20180701
